FAERS Safety Report 4325665-4 (Version None)
Quarter: 2004Q1

REPORT INFORMATION
  Report Type: 
  Country: None (occurrence: None)
  Receive Date: 20040324
  Receipt Date: 20040309
  Transmission Date: 20041129
  Serious: No
  Sender: FDA-Public Use
  Company Number: 2004CG00507

PATIENT
  Sex: Female

DRUGS (4)
  1. NAROPEINE [Suspect]
     Indication: ANAESTHESIA
  2. NAROPEINE [Suspect]
     Indication: POSTOPERATIVE ANALGESIA
  3. NAROPEINE [Suspect]
     Indication: ANAESTHESIA
     Dosage: 20 ML Q46H RNB
  4. NAROPEINE [Suspect]
     Indication: POSTOPERATIVE ANALGESIA
     Dosage: 20 ML Q46H RNB

REACTIONS (4)
  - ANAESTHETIC COMPLICATION [None]
  - FALL [None]
  - HAND FRACTURE [None]
  - HYPOAESTHESIA [None]
